FAERS Safety Report 21705340 (Version 2)
Quarter: 2022Q4

REPORT INFORMATION
  Report Type: Spontaneous
  Country: None (occurrence: US)
  Receive Date: 20221209
  Receipt Date: 20221222
  Transmission Date: 20230113
  Serious: Yes (Other)
  Sender: FDA-Public Use
  Company Number: US-Acacia Pharma Limited-2135717

PATIENT
  Age: 24 Year
  Sex: Female

DRUGS (1)
  1. BYFAVO [Suspect]
     Active Substance: REMIMAZOLAM BESYLATE
     Indication: Sedative therapy

REACTIONS (1)
  - Anaphylactic reaction [Recovered/Resolved]
